FAERS Safety Report 13859821 (Version 1)
Quarter: 2017Q3

REPORT INFORMATION
  Report Type: Spontaneous
  Country: SE (occurrence: SE)
  Receive Date: 20170811
  Receipt Date: 20170811
  Transmission Date: 20171127
  Serious: Yes (Hospitalization)
  Sender: FDA-Public Use
  Company Number: SE-PFIZER INC-2017345789

PATIENT
  Age: 85 Year
  Sex: Female

DRUGS (6)
  1. MIRTAZAPINE. [Suspect]
     Active Substance: MIRTAZAPINE
     Dosage: UNK
     Dates: end: 201706
  2. SALURES [Suspect]
     Active Substance: BENDROFLUMETHIAZIDE
     Dosage: UNK
     Dates: end: 201706
  3. TROMBYL [Concomitant]
     Active Substance: ASPIRIN
     Indication: ATRIAL FIBRILLATION
     Dosage: UNK
  4. CARDIZEM [Suspect]
     Active Substance: DILTIAZEM HYDROCHLORIDE
     Dosage: UNK
     Dates: end: 201706
  5. ALVEDON [Suspect]
     Active Substance: ACETAMINOPHEN
     Dosage: UNK
     Dates: end: 201706
  6. LOSARTAN. [Suspect]
     Active Substance: LOSARTAN
     Dosage: UNK
     Dates: end: 201706

REACTIONS (2)
  - Hepatic enzyme increased [Recovering/Resolving]
  - Cholelithiasis [Unknown]

NARRATIVE: CASE EVENT DATE: 20170612
